FAERS Safety Report 12804396 (Version 3)
Quarter: 2016Q4

REPORT INFORMATION
  Report Type: Spontaneous
  Country: IN (occurrence: IN)
  Receive Date: 20161003
  Receipt Date: 20161108
  Transmission Date: 20170207
  Serious: Yes (Death, Other)
  Sender: FDA-Public Use
  Company Number: PHHY2016IN135207

PATIENT
  Age: 65 Year
  Sex: Female

DRUGS (11)
  1. DAPTOMYCIN. [Suspect]
     Active Substance: DAPTOMYCIN
     Indication: KLEBSIELLA INFECTION
     Dosage: UNK
     Route: 065
     Dates: start: 201509
  2. METRONIDAZOLE. [Suspect]
     Active Substance: METRONIDAZOLE
     Indication: KLEBSIELLA INFECTION
     Dosage: UNK
     Route: 065
     Dates: start: 201509
  3. ENOXAPARIN SODIUM. [Concomitant]
     Active Substance: ENOXAPARIN SODIUM
     Indication: PRODUCT USED FOR UNKNOWN INDICATION
     Dosage: UNK
     Route: 065
     Dates: start: 201509
  4. DORIPENEM [Suspect]
     Active Substance: DORIPENEM
     Indication: KLEBSIELLA INFECTION
     Dosage: UNK
     Route: 065
     Dates: start: 201509
  5. DORIPENEM [Suspect]
     Active Substance: DORIPENEM
     Indication: ANTIBIOTIC THERAPY
  6. PERINORM [Concomitant]
     Indication: PRODUCT USED FOR UNKNOWN INDICATION
     Dosage: UNK
     Route: 065
     Dates: start: 201509
  7. DAPTOMYCIN. [Suspect]
     Active Substance: DAPTOMYCIN
     Indication: ANTIBIOTIC THERAPY
  8. TIGECYCLINE. [Suspect]
     Active Substance: TIGECYCLINE
     Indication: KLEBSIELLA INFECTION
     Dosage: UNK
     Route: 065
     Dates: start: 201509
  9. TIGECYCLINE. [Suspect]
     Active Substance: TIGECYCLINE
     Indication: ANTIBIOTIC THERAPY
  10. METRONIDAZOLE. [Suspect]
     Active Substance: METRONIDAZOLE
     Indication: ANTIBIOTIC THERAPY
  11. SODIUM CHLORIDE + DEXTROSE [Concomitant]
     Indication: PRODUCT USED FOR UNKNOWN INDICATION
     Dosage: UNK
     Route: 065
     Dates: start: 201509

REACTIONS (4)
  - Klebsiella infection [Fatal]
  - Drug administration error [Unknown]
  - Product use issue [Unknown]
  - Sepsis [Fatal]

NARRATIVE: CASE EVENT DATE: 2015
